FAERS Safety Report 5918579-7 (Version None)
Quarter: 2008Q4

REPORT INFORMATION
  Report Type: 
  Country: None (occurrence: None)
  Receive Date: 20081015
  Receipt Date: 20081002
  Transmission Date: 20090506
  Serious: Yes (Other)
  Sender: FDA-Public Use
  Company Number: PHHY2008JP21647

PATIENT
  Age: 58 Year
  Sex: Male

DRUGS (2)
  1. DIOVAN [Suspect]
     Indication: HYPERTENSION
     Dosage: 40 MG
     Route: 048
     Dates: start: 20080808
  2. AMARYL [Concomitant]
     Dosage: 3 MG
     Route: 048
     Dates: start: 20080720

REACTIONS (5)
  - BREAST PAIN [None]
  - BREAST SWELLING [None]
  - GYNAECOMASTIA [None]
  - MUSCULOSKELETAL STIFFNESS [None]
  - NEOPLASM MALIGNANT [None]
